FAERS Safety Report 9804851 (Version 1)
Quarter: 2014Q1

REPORT INFORMATION
  Report Type: Spontaneous
  Country: US (occurrence: US)
  Receive Date: 20140108
  Receipt Date: 20140108
  Transmission Date: 20141002
  Serious: No
  Sender: FDA-Public Use
  Company Number: US-TEVA-454830USA

PATIENT
  Sex: Female

DRUGS (1)
  1. QNASL [Suspect]
     Route: 055

REACTIONS (4)
  - Burning sensation [Recovered/Resolved]
  - Headache [Unknown]
  - Nasal congestion [Unknown]
  - Sinus headache [Unknown]
